FAERS Safety Report 16279702 (Version 1)
Quarter: 2019Q2

REPORT INFORMATION
  Report Type: Spontaneous
  Country: DE (occurrence: DE)
  Receive Date: 20190507
  Receipt Date: 20190507
  Transmission Date: 20190711
  Serious: Yes (Other)
  Sender: FDA-Public Use
  Company Number: DE-DRREDDYS-GER/GER/19/0109875

PATIENT
  Age: 1 Year
  Sex: Female
  Weight: 2.52 kg

DRUGS (4)
  1. TOPIRAMATE. [Suspect]
     Active Substance: TOPIRAMATE
     Indication: PRODUCT USED FOR UNKNOWN INDICATION
     Dosage: 250 [MG/D ]
     Route: 063
  2. TAVOR (LORAZEPAM) [Suspect]
     Active Substance: LORAZEPAM
     Indication: PRODUCT USED FOR UNKNOWN INDICATION
     Dosage: 1 [MG/D ]/ ON DEMAND
     Route: 063
  3. CLOBAZAM. [Suspect]
     Active Substance: CLOBAZAM
     Indication: PRODUCT USED FOR UNKNOWN INDICATION
     Route: 063
  4. LEVETIRACETAM. [Suspect]
     Active Substance: LEVETIRACETAM
     Indication: PRODUCT USED FOR UNKNOWN INDICATION
     Dosage: 3000 [MG/D ]
     Route: 063

REACTIONS (4)
  - Exposure via breast milk [Unknown]
  - Hypopnoea [Recovered/Resolved]
  - Apnoea [Recovered/Resolved]
  - Foetal exposure during pregnancy [Unknown]
